FAERS Safety Report 15348656 (Version 1)
Quarter: 2018Q3

REPORT INFORMATION
  Report Type: Spontaneous
  Country: US (occurrence: US)
  Receive Date: 20180829
  Receipt Date: 20180829
  Transmission Date: 20181010
  Serious: No
  Sender: FDA-Public Use
  Company Number: None

PATIENT
  Sex: Female
  Weight: 79.2 kg

DRUGS (8)
  1. DEXTROAMPHET SACCHARAT, AMPHET ASPARTATE, DEXTROAMPHET SULFATE AND AMPHET SULFAT [Suspect]
     Active Substance: AMPHETAMINE ASPARTATE\AMPHETAMINE SULFATE\DEXTROAMPHETAMINE SACCHARATE\DEXTROAMPHETAMINE SULFATE
     Indication: ATTENTION DEFICIT/HYPERACTIVITY DISORDER
     Dosage: ?          QUANTITY:1.5 TABLET(S);?
     Route: 048
     Dates: start: 20170228, end: 20180829
  2. NSAIDS [Concomitant]
     Active Substance: UNSPECIFIED INGREDIENT
  3. AMPHETAMINE/DEXTROAMPETAMINE IR [Concomitant]
  4. BUPROPION XL [Concomitant]
     Active Substance: BUPROPION
  5. ANTIHISTAMINES [Concomitant]
     Active Substance: ANTIHISTAMINES NOS
  6. FLUOXETINE [Concomitant]
     Active Substance: FLUOXETINE HYDROCHLORIDE
  7. LAMOTRIGENE [Concomitant]
     Active Substance: LAMOTRIGINE
  8. ANTACIDS [Concomitant]
     Active Substance: UNSPECIFIED INGREDIENT

REACTIONS (7)
  - Drug ineffective [None]
  - Anxiety [None]
  - Nausea [None]
  - Product quality issue [None]
  - Malaise [None]
  - Product substitution issue [None]
  - Headache [None]
